FAERS Safety Report 24553526 (Version 1)
Quarter: 2024Q4

REPORT INFORMATION
  Report Type: Spontaneous
  Country: US (occurrence: US)
  Receive Date: 20241028
  Receipt Date: 20241028
  Transmission Date: 20250114
  Serious: No
  Sender: ROCHE
  Company Number: US-ROCHE-3495630

PATIENT
  Sex: Female

DRUGS (3)
  1. NUTROPIN AQ [Suspect]
     Active Substance: SOMATROPIN
     Indication: Product used for unknown indication
     Route: 058
     Dates: start: 202206, end: 2023
  2. NUTROPIN AQ [Suspect]
     Active Substance: SOMATROPIN
     Dosage: DOSAGE CHANGE TO ONCE EVERY OTHER DAY
     Route: 058
     Dates: start: 2023, end: 20240101
  3. NUTROPIN AQ [Suspect]
     Active Substance: SOMATROPIN
     Dosage: DOSAGE SWITCHED TO EVERY 3RD DAY
     Route: 058
     Dates: start: 20240101

REACTIONS (3)
  - Mood altered [Not Recovered/Not Resolved]
  - Anxiety [Not Recovered/Not Resolved]
  - Depression [Not Recovered/Not Resolved]

NARRATIVE: CASE EVENT DATE: 20230101
